FAERS Safety Report 4927775-7 (Version None)
Quarter: 2006Q1

REPORT INFORMATION
  Report Type: 
  Country: None (occurrence: None)
  Receive Date: 20060228
  Receipt Date: 20050912
  Transmission Date: 20060701
  Serious: No
  Sender: FDA-Public Use
  Company Number: US-GLAXOSMITHKLINE-A0573855A

PATIENT
  Age: 36 Year
  Sex: Male
  Weight: 77 kg

DRUGS (8)
  1. ZIAGEN [Suspect]
     Indication: HIV INFECTION
     Dosage: 300MG TWICE PER DAY
     Route: 048
  2. EPIVIR [Concomitant]
  3. SUSTIVA [Concomitant]
  4. SYNTHROID [Concomitant]
  5. TOPROL [Concomitant]
  6. PHOSLO [Concomitant]
  7. MESALAMINE [Concomitant]
  8. ALBUTEROL [Concomitant]

REACTIONS (1)
  - MEDICATION RESIDUE [None]
